FAERS Safety Report 11406043 (Version 2)
Quarter: 2015Q3

REPORT INFORMATION
  Report Type: Spontaneous
  Country: CH (occurrence: CH)
  Receive Date: 20150821
  Receipt Date: 20150901
  Transmission Date: 20151125
  Serious: Yes (Hospitalization)
  Sender: FDA-Public Use
  Company Number: CH-GE HEALTHCARE MEDICAL DIAGNOSTICS-OMPQ-PR-1508S-1394

PATIENT
  Age: 79 Year
  Sex: Male

DRUGS (14)
  1. DIAMICRON [Concomitant]
     Active Substance: GLICLAZIDE
  2. METAMUCIL [Concomitant]
     Active Substance: PLANTAGO SEED
  3. DAFALGAN [Concomitant]
     Active Substance: ACETAMINOPHEN
  4. BELOC [Concomitant]
     Active Substance: METOPROLOL TARTRATE
  5. AERIUS [Concomitant]
     Active Substance: DESLORATADINE
  6. ACCUPAQUE [Suspect]
     Active Substance: IOHEXOL
     Indication: PULMONARY EMBOLISM
     Dosage: DOSE NOT REPORTED
     Route: 042
     Dates: start: 20150729, end: 20150729
  7. ACCUPAQUE [Suspect]
     Active Substance: IOHEXOL
     Indication: DIAGNOSTIC PROCEDURE
     Route: 042
     Dates: start: 20150729, end: 20150729
  8. ATORVASTATIN [Concomitant]
     Active Substance: ATORVASTATIN
     Route: 048
  9. TOREM [Concomitant]
     Active Substance: TORSEMIDE
  10. SYMBICORT [Concomitant]
     Active Substance: BUDESONIDE\FORMOTEROL FUMARATE DIHYDRATE
  11. FLATULEX [Concomitant]
     Active Substance: ACTIVATED CHARCOAL\DIMETHICONE
  12. SINTROM [Concomitant]
     Active Substance: ACENOCOUMAROL
  13. METFIN [Concomitant]
     Active Substance: METFORMIN HYDROCHLORIDE
  14. ATACAND [Concomitant]
     Active Substance: CANDESARTAN CILEXETIL

REACTIONS (2)
  - Acute generalised exanthematous pustulosis [Recovering/Resolving]
  - Overdose [Unknown]

NARRATIVE: CASE EVENT DATE: 20150730
